FAERS Safety Report 25351053 (Version 1)
Quarter: 2025Q2

REPORT INFORMATION
  Report Type: Report from Study
  Country: US (occurrence: US)
  Receive Date: 20250523
  Receipt Date: 20250523
  Transmission Date: 20250716
  Serious: No
  Sender: SANDOZ
  Company Number: US-SANDOZ-SDZ2025US029481

PATIENT
  Age: 13 Year
  Sex: Male

DRUGS (2)
  1. OMNITROPE [Suspect]
     Active Substance: SOMATROPIN
     Indication: Short stature
     Dosage: 0.86 ML, QD, (STRENGTH: 5 MG/MLPOWDER AND SOLVENT FOR SOLUTION FOR INJECTION)
     Route: 058
     Dates: start: 20250504
  2. OMNITROPE [Suspect]
     Active Substance: SOMATROPIN
     Indication: Short stature
     Dosage: 0.86 ML, QD, (STRENGTH: 5 MG/MLPOWDER AND SOLVENT FOR SOLUTION FOR INJECTION)
     Route: 058
     Dates: start: 20250504

REACTIONS (4)
  - Ear pruritus [Unknown]
  - Incorrect dose administered by device [Unknown]
  - Wrong technique in device usage process [Unknown]
  - Device issue [Unknown]

NARRATIVE: CASE EVENT DATE: 20250501
